FAERS Safety Report 15688569 (Version 3)
Quarter: 2018Q4

REPORT INFORMATION
  Report Type: Spontaneous
  Country: FR (occurrence: FR)
  Receive Date: 20181205
  Receipt Date: 20181218
  Transmission Date: 20190205
  Serious: Yes (Other)
  Sender: FDA-Public Use
  Company Number: FR-ASTELLAS-2018US051664

PATIENT
  Age: 40 Year
  Sex: Male

DRUGS (1)
  1. VESICARE [Suspect]
     Active Substance: SOLIFENACIN SUCCINATE
     Indication: POLLAKIURIA
     Route: 048

REACTIONS (3)
  - Nasopharyngitis [Recovered/Resolved]
  - Visual impairment [Recovering/Resolving]
  - Headache [Recovered/Resolved]
